FAERS Safety Report 7529936-X (Version None)
Quarter: 2011Q2

REPORT INFORMATION
  Report Type: 
  Country: None (occurrence: None)
  Receive Date: 20110607
  Receipt Date: 20110523
  Transmission Date: 20111010
  Serious: Yes (Death)
  Sender: FDA-Public Use
  Company Number: US-WATSON-2011-07074

PATIENT
  Sex: Female
  Weight: 108.8 kg

DRUGS (2)
  1. LOXAPINE SUCCINATE [Suspect]
     Indication: SCHIZOAFFECTIVE DISORDER
     Dosage: 10 MG, BID
     Route: 048
     Dates: start: 20100928
  2. CLOZAPINE [Suspect]
     Indication: PRODUCT USED FOR UNKNOWN INDICATION
     Dosage: 150 MG, BID
     Route: 065
     Dates: start: 20100101

REACTIONS (7)
  - DYSARTHRIA [None]
  - ATAXIA [None]
  - SALIVARY HYPERSECRETION [None]
  - DELIRIUM [None]
  - NEUROLEPTIC MALIGNANT SYNDROME [None]
  - DEATH [None]
  - RESPIRATORY FAILURE [None]
